FAERS Safety Report 10155660 (Version 2)
Quarter: 2014Q2

REPORT INFORMATION
  Report Type: Spontaneous
  Country: US (occurrence: US)
  Receive Date: 20140506
  Receipt Date: 20140625
  Transmission Date: 20141212
  Serious: Yes (Other)
  Sender: FDA-Public Use
  Company Number: US-GLAXOSMITHKLINE-A1071991A

PATIENT
  Sex: Male

DRUGS (2)
  1. AVODART [Suspect]
     Indication: PRODUCT USED FOR UNKNOWN INDICATION
     Route: 065
     Dates: start: 20120131
  2. FLONASE [Concomitant]
     Dates: start: 20090422

REACTIONS (3)
  - Scoliosis surgery [Unknown]
  - Scoliosis [Unknown]
  - Sciatica [Unknown]
